FAERS Safety Report 15850201 (Version 1)
Quarter: 2019Q1

REPORT INFORMATION
  Report Type: Report from Study
  Country: US (occurrence: US)
  Receive Date: 20190121
  Receipt Date: 20190121
  Transmission Date: 20190417
  Serious: Yes (Other)
  Sender: FDA-Public Use
  Company Number: US-BIOGEN-2017BI00503304

PATIENT
  Sex: Female

DRUGS (1)
  1. TECFIDERA [Suspect]
     Active Substance: DIMETHYL FUMARATE
     Indication: MULTIPLE SCLEROSIS
     Route: 048
     Dates: start: 201607

REACTIONS (7)
  - General physical health deterioration [Unknown]
  - Libido decreased [Unknown]
  - Depression [Unknown]
  - Pruritus [Unknown]
  - Burns second degree [Unknown]
  - Malaise [Unknown]
  - Balance disorder [Unknown]
